FAERS Safety Report 7508732-3 (Version None)
Quarter: 2011Q2

REPORT INFORMATION
  Report Type: 
  Country: None (occurrence: None)
  Receive Date: 20110527
  Receipt Date: 20101018
  Transmission Date: 20111010
  Serious: No
  Sender: FDA-Public Use
  Company Number: A0887402A

PATIENT
  Age: 51 Year
  Sex: Male

DRUGS (2)
  1. NO CONCURRENT MEDICATION [Concomitant]
  2. VENTOLIN [Suspect]
     Indication: MULTIPLE ALLERGIES
     Route: 055

REACTIONS (1)
  - DRUG INEFFECTIVE [None]
